FAERS Safety Report 10042453 (Version 1)
Quarter: 2014Q1

REPORT INFORMATION
  Report Type: Spontaneous
  Country: DE (occurrence: DE)
  Receive Date: 20140327
  Receipt Date: 20140327
  Transmission Date: 20141002
  Serious: Yes (Other)
  Sender: FDA-Public Use
  Company Number: DE-ALLERGAN-1405570US

PATIENT
  Sex: Male

DRUGS (1)
  1. COMBIGAN 2 MG/ML + 5 MG/ML AUGENTROPFEN [Suspect]
     Indication: PRODUCT USED FOR UNKNOWN INDICATION
     Route: 047

REACTIONS (3)
  - Visual impairment [Not Recovered/Not Resolved]
  - Surgery [Unknown]
  - Hepatic enzyme increased [Not Recovered/Not Resolved]
